FAERS Safety Report 4641469-7 (Version None)
Quarter: 2005Q2

REPORT INFORMATION
  Report Type: 
  Country: None (occurrence: None)
  Receive Date: 20050421
  Receipt Date: 20050411
  Transmission Date: 20051028
  Serious: Yes (Other)
  Sender: FDA-Public Use
  Company Number: DE-NOVOPROD-243452

PATIENT
  Age: 33 Year
  Sex: Female
  Weight: 66 kg

DRUGS (3)
  1. NOVOSEVEN [Suspect]
     Indication: HAEMORRHAGE
     Dosage: 3.2 MG, QD
     Route: 042
     Dates: start: 20050218
  2. METOPROLOL TARTRATE [Concomitant]
     Dosage: 50 MG, QD
     Route: 048
  3. MORPHINE [Concomitant]
     Dosage: 72 MG, QD
     Route: 042

REACTIONS (5)
  - ANGINA PECTORIS [None]
  - CYTOMEGALOVIRUS COLITIS [None]
  - GRAFT VERSUS HOST DISEASE [None]
  - HYPERTENSION [None]
  - SEPSIS [None]
